FAERS Safety Report 14963608 (Version 1)
Quarter: 2018Q2

REPORT INFORMATION
  Report Type: Spontaneous
  Country: RU (occurrence: RU)
  Receive Date: 20180601
  Receipt Date: 20180601
  Transmission Date: 20180711
  Serious: Yes (Hospitalization, Other)
  Sender: FDA-Public Use
  Company Number: RU-SHIRE-RU201820397

PATIENT

DRUGS (1)
  1. PEGASPARGASE [Suspect]
     Active Substance: PEGASPARGASE
     Indication: ACUTE LYMPHOCYTIC LEUKAEMIA
     Dosage: 50 MG (15 MG/ 2025 IU), UNK
     Route: 042

REACTIONS (1)
  - Retinal detachment [Recovering/Resolving]

NARRATIVE: CASE EVENT DATE: 20180109
